FAERS Safety Report 7994746-6 (Version None)
Quarter: 2011Q4

REPORT INFORMATION
  Report Type: 
  Country: None (occurrence: None)
  Receive Date: 20111220
  Receipt Date: 20111209
  Transmission Date: 20120403
  Serious: No
  Sender: FDA-Public Use
  Company Number: US-BAYER-2011-119626

PATIENT
  Age: 78 Year
  Sex: Male

DRUGS (2)
  1. AVELOX [Suspect]
     Dosage: 400 MG, QD
     Route: 048
     Dates: start: 20111207
  2. SPIRIVA [Concomitant]

REACTIONS (2)
  - DYSGEUSIA [None]
  - DRY MOUTH [None]
